FAERS Safety Report 5250818-0 (Version None)
Quarter: 2007Q1

REPORT INFORMATION
  Report Type: 
  Country: None (occurrence: None)
  Receive Date: 20070228
  Receipt Date: 20060711
  Transmission Date: 20070707
  Serious: Yes (Other)
  Sender: FDA-Public Use
  Company Number: US-GLAXOSMITHKLINE-A0611811A

PATIENT
  Age: 49 Year
  Sex: Male

DRUGS (5)
  1. LAMICTAL [Suspect]
     Indication: PARTIAL SEIZURES
     Route: 048
     Dates: start: 20060101
  2. AVACOR HERBAL DHT BLOCKER [Concomitant]
  3. ACTOS [Concomitant]
  4. CONCERTA [Concomitant]
  5. PROPECIA [Concomitant]

REACTIONS (2)
  - DEAFNESS UNILATERAL [None]
  - VISION BLURRED [None]
